FAERS Safety Report 14119715 (Version 1)
Quarter: 2017Q4

REPORT INFORMATION
  Report Type: Spontaneous
  Country: GB (occurrence: GB)
  Receive Date: 20171024
  Receipt Date: 20171024
  Transmission Date: 20180321
  Serious: Yes (Other)
  Sender: FDA-Public Use
  Company Number: PHFR2017GB008259

PATIENT
  Age: 42 Year
  Sex: Female
  Weight: 77 kg

DRUGS (5)
  1. MAXIDEX [Suspect]
     Active Substance: DEXAMETHASONE
     Dosage: 1 GTT, BID (ONE WEEK)
     Route: 047
     Dates: start: 20171004
  2. MAXIDEX [Suspect]
     Active Substance: DEXAMETHASONE
     Dosage: 1 GTT, QID (ONE WEEK)
     Route: 047
     Dates: start: 20170920, end: 20170926
  3. MAXIDEX [Suspect]
     Active Substance: DEXAMETHASONE
     Indication: IRITIS
     Dosage: 1 GTT, 6QD (ONE WEEK)
     Route: 047
     Dates: start: 20170913, end: 20170919
  4. MAXIDEX [Suspect]
     Active Substance: DEXAMETHASONE
     Dosage: 1 GTT, QD (PER WEEK)
     Route: 047
  5. MAXIDEX [Suspect]
     Active Substance: DEXAMETHASONE
     Dosage: 1 GTT, TID (ONE WEEK)
     Route: 047
     Dates: start: 20170927, end: 20171003

REACTIONS (1)
  - Intraocular pressure increased [Not Recovered/Not Resolved]
